FAERS Safety Report 7222216-1 (Version None)
Quarter: 2011Q1

REPORT INFORMATION
  Report Type: 
  Country: None (occurrence: None)
  Receive Date: 20110112
  Receipt Date: 20110103
  Transmission Date: 20110831
  Serious: Yes (Hospitalization)
  Sender: FDA-Public Use
  Company Number: FR-ASTRAZENECA-2011SE00176

PATIENT
  Age: 23345 Day
  Sex: Female

DRUGS (14)
  1. GLICLAZIDE [Concomitant]
     Indication: TYPE 2 DIABETES MELLITUS
     Route: 048
     Dates: end: 20101006
  2. DOLIPRANE [Concomitant]
     Route: 048
  3. LANZOPRAZOLE [Concomitant]
     Route: 048
  4. FLUDEX ER [Suspect]
     Indication: HYPERTENSION
     Route: 048
     Dates: end: 20101006
  5. APIDRA [Concomitant]
     Indication: DIABETES MELLITUS
     Route: 058
  6. LEXOMIL [Concomitant]
     Indication: ANXIETY
     Route: 048
  7. ATENOLOL [Concomitant]
     Indication: HYPERTENSION
     Route: 048
  8. PREVISCAN [Concomitant]
     Indication: CARDIAC VALVE PROSTHESIS USER
     Route: 048
     Dates: end: 20101006
  9. NITROGLYCERIN [Concomitant]
     Indication: CARDIOMYOPATHY
     Route: 048
  10. ATACAND [Suspect]
     Indication: HYPERTENSION
     Route: 048
     Dates: end: 20101006
  11. EZETROL [Concomitant]
     Indication: OBESITY
     Route: 048
  12. LEVEMIR [Concomitant]
     Indication: DIABETES MELLITUS
     Route: 058
  13. METFORMIN HCL [Concomitant]
     Indication: TYPE 2 DIABETES MELLITUS
     Route: 048
     Dates: end: 20101006
  14. ALPRAZOLAM [Concomitant]
     Indication: ANXIETY
     Route: 048

REACTIONS (2)
  - METABOLIC ACIDOSIS [None]
  - RENAL FAILURE ACUTE [None]
